FAERS Safety Report 9013562 (Version 1)
Quarter: 2013Q1

REPORT INFORMATION
  Report Type: Report from Study
  Country: AU (occurrence: AU)
  Receive Date: 20130115
  Receipt Date: 20130115
  Transmission Date: 20140127
  Serious: Yes (Hospitalization)
  Sender: FDA-Public Use
  Company Number: PHHY2013AU002868

PATIENT
  Sex: Male

DRUGS (2)
  1. CLOZARIL [Suspect]
     Dosage: 600 MG, (NOCTE)
     Dates: start: 201107
  2. CLOZARIL [Suspect]
     Dosage: 1200 MG, (600 MG DOSE AT 5 PM AND 600 MG AT 8 PM)
     Dates: start: 20130110

REACTIONS (1)
  - Incorrect dose administered [Unknown]
